FAERS Safety Report 7371954-9 (Version None)
Quarter: 2011Q1

REPORT INFORMATION
  Report Type: 
  Country: None (occurrence: None)
  Receive Date: 20110322
  Receipt Date: 20110322
  Transmission Date: 20110831
  Serious: Yes (Hospitalization)
  Sender: FDA-Public Use
  Company Number: None

PATIENT
  Age: 66 Year
  Sex: Male
  Weight: 68 kg

DRUGS (2)
  1. ERTAPENEM [Suspect]
     Indication: OSTEOMYELITIS
     Dosage: 1 GM EVERY DAY IV
     Route: 042
     Dates: start: 20110309, end: 20110315
  2. VANCOMYCIN [Suspect]
     Indication: OSTEOMYELITIS
     Dosage: 750 MG BID IV
     Route: 042
     Dates: start: 20110303, end: 20110315

REACTIONS (1)
  - RENAL FAILURE ACUTE [None]
